FAERS Safety Report 19608866 (Version 1)
Quarter: 2021Q3

REPORT INFORMATION
  Report Type: Spontaneous
  Country: US (occurrence: US)
  Receive Date: 20210725
  Receipt Date: 20210725
  Transmission Date: 20211014
  Serious: No
  Sender: FDA-Public Use
  Company Number: None

PATIENT
  Age: 62 Year
  Sex: Female
  Weight: 99 kg

DRUGS (8)
  1. HALOPERIDOL DECANOATE. [Suspect]
     Active Substance: HALOPERIDOL DECANOATE
     Indication: SCHIZOPHRENIA
     Dosage: ?          OTHER FREQUENCY:EVERY 28 DAYS;?
     Route: 030
     Dates: start: 20210113, end: 20210311
  2. OLANZAPINE 10 MG [Concomitant]
     Active Substance: OLANZAPINE
  3. LOSARTAN 100 MG [Concomitant]
     Active Substance: LOSARTAN
  4. PROPRANOLOL 20 MG [Concomitant]
     Active Substance: PROPRANOLOL HYDROCHLORIDE
  5. GABAPENTIN 300 MG [Concomitant]
     Active Substance: GABAPENTIN
  6. TRAZODONE [Concomitant]
     Active Substance: TRAZODONE HYDROCHLORIDE
  7. HALOPERIDOL 10 MG [Concomitant]
     Active Substance: HALOPERIDOL
  8. PRAVASTATIN 40 MG [Concomitant]
     Active Substance: PRAVASTATIN

REACTIONS (3)
  - Injection site pain [None]
  - Injection site induration [None]
  - Pyrexia [None]

NARRATIVE: CASE EVENT DATE: 20210311
